FAERS Safety Report 19030111 (Version 2)
Quarter: 2025Q1

REPORT INFORMATION
  Report Type: Spontaneous
  Country: AU (occurrence: AU)
  Receive Date: 20210319
  Receipt Date: 20250107
  Transmission Date: 20250409
  Serious: Yes (Life-Threatening, Hospitalization, Other)
  Sender: SANOFI AVENTIS
  Company Number: AU-SA-2021SA023112

PATIENT
  Age: 55 Year
  Sex: Male

DRUGS (10)
  1. ENOXAPARIN SODIUM [Suspect]
     Active Substance: ENOXAPARIN SODIUM
     Indication: Acute myocardial infarction
  2. ASPIRIN [Suspect]
     Active Substance: ASPIRIN
     Indication: Acute myocardial infarction
  3. LABETALOL [Concomitant]
     Active Substance: LABETALOL
     Indication: Blood pressure systolic increased
  4. CLONIDINE [Concomitant]
     Active Substance: CLONIDINE
     Indication: Blood pressure systolic increased
  5. AMLODIPINE [Concomitant]
     Active Substance: AMLODIPINE BESYLATE
     Indication: Blood pressure systolic increased
  6. PRAZOSIN [Concomitant]
     Active Substance: PRAZOSIN
     Indication: Blood pressure systolic increased
  7. PRAZOSIN [Concomitant]
     Active Substance: PRAZOSIN
     Dosage: 2 MG, TID
  8. ACETAMINOPHEN [Concomitant]
     Active Substance: ACETAMINOPHEN
     Indication: Pain management
  9. KETAMINE [Concomitant]
     Active Substance: KETAMINE
     Indication: Pain management
     Dosage: 8 MG, QH
  10. FENTANYL [Concomitant]
     Active Substance: FENTANYL
     Indication: Pain management

REACTIONS (19)
  - Neoplasm [Unknown]
  - Nephrolithiasis [Unknown]
  - Phaeochromocytoma [Unknown]
  - Acute kidney injury [Unknown]
  - Adrenal cortex necrosis [Unknown]
  - Pyelonephritis [Unknown]
  - Haemoperitoneum [Unknown]
  - Retroperitoneal haemorrhage [Recovering/Resolving]
  - Condition aggravated [Recovering/Resolving]
  - Abdominal pain [Recovering/Resolving]
  - Abdominal rebound tenderness [Recovering/Resolving]
  - Adrenal haemorrhage [Recovering/Resolving]
  - Flank pain [Unknown]
  - Left ventricular hypertrophy [Unknown]
  - Metanephrine urine increased [Unknown]
  - Normetanephrine urine increased [Unknown]
  - Pain [Unknown]
  - White blood cell count increased [Unknown]
  - Off label use [Unknown]
